FAERS Safety Report 9680062 (Version 4)
Quarter: 2014Q1

REPORT INFORMATION
  Report Type: Spontaneous
  Country: DE (occurrence: DE)
  Receive Date: 20131110
  Receipt Date: 20140206
  Transmission Date: 20141002
  Serious: Yes (Death, Hospitalization, Other)
  Sender: FDA-Public Use
  Company Number: DE-AMGEN-DEUSP2013078816

PATIENT
  Age: 48 Year
  Sex: Male
  Weight: 80 kg

DRUGS (5)
  1. ENBREL [Suspect]
     Indication: ANKYLOSING SPONDYLITIS
     Dosage: 50 MG, WEEKLY
     Route: 058
     Dates: start: 201306, end: 20131010
  2. IBUPROFEN [Concomitant]
     Indication: PAIN
     Dosage: 600 MG, 3X/DAY
     Route: 048
     Dates: start: 20131014, end: 20131016
  3. PARACETAMOL [Concomitant]
     Indication: PYREXIA
     Dosage: 500 MG, 3X/DAY
     Route: 048
     Dates: start: 20131017
  4. PARACETAMOL [Concomitant]
     Indication: PAIN
     Dosage: UNK
  5. INDOMET                            /00003801/ [Concomitant]
     Dosage: UNK, AS NECESSARY

REACTIONS (10)
  - Orbital oedema [Unknown]
  - Swelling face [Unknown]
  - Blood calcium decreased [Unknown]
  - Ocular icterus [Unknown]
  - Liver function test abnormal [Unknown]
  - White blood cell count abnormal [Unknown]
  - Ankylosing spondylitis [Unknown]
  - Sepsis [Fatal]
  - Streptococcal bacteraemia [Unknown]
  - Nasopharyngitis [Unknown]
